FAERS Safety Report 8456008-2 (Version None)
Quarter: 2012Q2

REPORT INFORMATION
  Report Type: 
  Country: None (occurrence: None)
  Receive Date: 20120621
  Receipt Date: 20120615
  Transmission Date: 20120825
  Serious: Yes (Other)
  Sender: FDA-Public Use
  Company Number: PHHY2012CA052036

PATIENT

DRUGS (1)
  1. AFINITOR [Suspect]

REACTIONS (1)
  - BLOOD GLUCOSE ABNORMAL [None]
